FAERS Safety Report 6347645-X (Version None)
Quarter: 2009Q3

REPORT INFORMATION
  Report Type: 
  Country: None (occurrence: None)
  Receive Date: 20090910
  Receipt Date: 20090828
  Transmission Date: 20100115
  Serious: Yes (Life-Threatening)
  Sender: FDA-Public Use
  Company Number: DK-GENENTECH-289915

PATIENT
  Sex: Male

DRUGS (3)
  1. MABTHERA [Suspect]
     Indication: WEGENER'S GRANULOMATOSIS
     Dosage: 500 MG, UNK
     Route: 042
     Dates: start: 20090629, end: 20090629
  2. NEXIUM [Concomitant]
     Indication: DRUG USE FOR UNKNOWN INDICATION
     Dosage: UNK
     Dates: start: 20090620
  3. CYCLOFOSFAMIDE [Concomitant]
     Indication: DRUG USE FOR UNKNOWN INDICATION
     Dosage: UNK
     Dates: start: 20090626

REACTIONS (4)
  - DISTURBANCE IN ATTENTION [None]
  - DYSPNOEA [None]
  - HAEMOPTYSIS [None]
  - MUSCLE CONTRACTURE [None]
